FAERS Safety Report 6160372-7 (Version None)
Quarter: 2009Q2

REPORT INFORMATION
  Report Type: 
  Country: None (occurrence: None)
  Receive Date: 20090416
  Receipt Date: 20090401
  Transmission Date: 20091009
  Serious: Yes (Death)
  Sender: FDA-Public Use
  Company Number: VAL_00250_2009

PATIENT
  Sex: Female

DRUGS (9)
  1. ROCALTROL [Suspect]
     Indication: DRUG USE FOR UNKNOWN INDICATION
     Dosage: 0.5 UG QD
  2. MABTHERA (MABTHERA - RITUXIMAB) (NOT SPECIFIED) [Suspect]
     Indication: RHEUMATOID ARTHRITIS
     Dosage: 1000 MG 1X/6 MONTHS, THERAPY DURATION REPORTED AS 118 DAYS
     Dates: start: 20081205, end: 20090401
  3. CALCIUM CARBONATE [Concomitant]
  4. ALENDRONATE SODIUM [Concomitant]
  5. FOLIC ACID [Concomitant]
  6. METOPROLOL TARTRATE [Concomitant]
  7. SIMVASTATIN [Concomitant]
  8. LANZUL [Concomitant]
  9. DICLOFENAC [Concomitant]

REACTIONS (1)
  - DEATH [None]
